FAERS Safety Report 25265221 (Version 1)
Quarter: 2025Q2

REPORT INFORMATION
  Report Type: Spontaneous
  Country: US (occurrence: US)
  Receive Date: 20250502
  Receipt Date: 20250502
  Transmission Date: 20250717
  Serious: No
  Sender: PHARMING GROUP
  Company Number: US-PHARMING-PHAUS2025000593

PATIENT

DRUGS (1)
  1. JOENJA [Suspect]
     Active Substance: LENIOLISIB PHOSPHATE
     Indication: Product used for unknown indication
     Dosage: 70 MILLIGRAM, BID

REACTIONS (3)
  - Hepatic steatosis [Unknown]
  - Stomatitis [Unknown]
  - Alopecia [Unknown]
